FAERS Safety Report 20353870 (Version 1)
Quarter: 2022Q1

REPORT INFORMATION
  Report Type: Spontaneous
  Country: CN (occurrence: None)
  Receive Date: 20220120
  Receipt Date: 20220120
  Transmission Date: 20220424
  Serious: Yes (Other)
  Sender: FDA-Public Use
  Company Number: CN-ROCHE-3002387

PATIENT
  Age: 43 Year
  Sex: Male

DRUGS (6)
  1. MABTHERA [Suspect]
     Active Substance: RITUXIMAB
     Indication: Follicular lymphoma
     Dosage: 21 DAYS AS A CYCLE, 2 CYCLES
     Route: 041
     Dates: start: 20210930, end: 20211021
  2. GAZYVA [Suspect]
     Active Substance: OBINUTUZUMAB
     Indication: Follicular lymphoma
     Dosage: 21 DAYS AS A CYCLE, 2 CYCLES
     Route: 041
     Dates: start: 20211112, end: 20211208
  3. CYCLOPHOSPHAMIDE [Concomitant]
     Active Substance: CYCLOPHOSPHAMIDE
     Indication: Follicular lymphoma
     Dosage: 21 DAYS AS A CYCLE
     Route: 041
     Dates: start: 20210930
  4. DOXORUBICIN [Concomitant]
     Active Substance: DOXORUBICIN
     Indication: Follicular lymphoma
     Dosage: 21 DAYS AS A CYCLE
     Route: 041
     Dates: start: 20210930
  5. VINCRISTINE [Concomitant]
     Active Substance: VINCRISTINE
     Indication: Follicular lymphoma
     Dosage: 21 DAYS AS A CYCLE
     Route: 041
     Dates: start: 20210930
  6. PREDNISONE [Concomitant]
     Active Substance: PREDNISONE
     Indication: Follicular lymphoma
     Dosage: 21 DAYS AS A CYCLE
     Route: 041
     Dates: start: 20210930

REACTIONS (1)
  - Interstitial lung disease [Recovering/Resolving]
